FAERS Safety Report 8443028-7 (Version None)
Quarter: 2012Q2

REPORT INFORMATION
  Report Type: 
  Country: None (occurrence: None)
  Receive Date: 20120615
  Receipt Date: 20120612
  Transmission Date: 20120825
  Serious: Yes (Life-Threatening, Hospitalization)
  Sender: FDA-Public Use
  Company Number: PHHY2012DK051037

PATIENT
  Age: 61 Year
  Sex: Female

DRUGS (4)
  1. ANGIOTENSIN II ANTAGONISTS [Concomitant]
  2. NSAID'S [Concomitant]
  3. METFORMIN HCL [Suspect]
     Indication: TYPE 2 DIABETES MELLITUS
  4. INSULIN [Concomitant]

REACTIONS (10)
  - SEPTIC SHOCK [None]
  - HYPOTENSION [None]
  - TACHYPNOEA [None]
  - CONFUSIONAL STATE [None]
  - GASTROINTESTINAL DISORDER [None]
  - HYPERKALAEMIA [None]
  - ANURIA [None]
  - BLOOD CREATININE INCREASED [None]
  - BRADYCARDIA [None]
  - LACTIC ACIDOSIS [None]
